FAERS Safety Report 9103262 (Version 1)
Quarter: 2013Q1

REPORT INFORMATION
  Report Type: Spontaneous
  Country: US (occurrence: US)
  Receive Date: 20130219
  Receipt Date: 20130219
  Transmission Date: 20140127
  Serious: Yes (Other)
  Sender: FDA-Public Use
  Company Number: US-RB-050032-13

PATIENT
  Age: 70 Year
  Sex: Female

DRUGS (4)
  1. MUCINEX FAST- MAX ADULT CAPLETS COLD FLU AND SORE THROAT [Suspect]
     Indication: PRODUCT USED FOR UNKNOWN INDICATION
     Dosage: TOOK 2 CAPLETS EVERY 4 HOURS
     Route: 048
     Dates: start: 20130204
  2. MUCINEX FAST-MAX COLD, FLU AND SORE THROAT [Suspect]
  3. MUCINEX FAST-MAX COLD, FLU AND SORE THROAT [Suspect]
  4. MUCINEX FAST-MAX COLD, FLU AND SORE THROAT [Suspect]

REACTIONS (3)
  - Confusional state [Recovered/Resolved]
  - Mental disorder [Recovered/Resolved]
  - Incoherent [None]
